FAERS Safety Report 6235629-1 (Version None)
Quarter: 2009Q2

REPORT INFORMATION
  Report Type: 
  Country: None (occurrence: None)
  Receive Date: 20090616
  Receipt Date: 20090529
  Transmission Date: 20091009
  Serious: Yes (Life-Threatening, Other)
  Sender: FDA-Public Use
  Company Number: JPI-P-007108

PATIENT
  Age: 25 Year
  Sex: Male

DRUGS (3)
  1. LUVOX [Suspect]
     Indication: DEPRESSION
     Dosage: 50 MG, 1 D), ORAL
     Route: 048
     Dates: start: 20080501, end: 20080908
  2. OLANZAPINE [Suspect]
     Indication: DEPRESSION
     Dosage: 2.5 MG, 1 D), ORAL
     Route: 048
     Dates: start: 20080501, end: 20080923
  3. BROMAZEPAM [Suspect]
     Indication: DEPRESSION
     Dosage: 5 MG, 1 D), ORAL
     Route: 048
     Dates: start: 20080501, end: 20080923

REACTIONS (6)
  - AGITATION [None]
  - ALTERED STATE OF CONSCIOUSNESS [None]
  - INAPPROPRIATE ANTIDIURETIC HORMONE SECRETION [None]
  - INCORRECT DOSE ADMINISTERED [None]
  - NEUROLEPTIC MALIGNANT SYNDROME [None]
  - VOMITING [None]
